FAERS Safety Report 7689187-5 (Version None)
Quarter: 2011Q3

REPORT INFORMATION
  Report Type: 
  Country: None (occurrence: None)
  Receive Date: 20110811
  Receipt Date: 20110726
  Transmission Date: 20111222
  Serious: Yes (Hospitalization)
  Sender: FDA-Public Use
  Company Number: VAL_00597_2011

PATIENT
  Sex: Female

DRUGS (15)
  1. ENALAPRIL MALEATE [Concomitant]
  2. EPOETIN ALFA [Concomitant]
  3. CYCLOPHOSPHAMIDE [Concomitant]
  4. ERYTHROMYCIN [Concomitant]
  5. NEPHPLEX RX [Concomitant]
  6. DOCUSATE SODIUM [Concomitant]
  7. ONDANSETRON [Concomitant]
  8. SEVELAMER CARBONATE [Concomitant]
  9. AZATHIOPRINE [Concomitant]
  10. CALCITRIOL [Suspect]
     Indication: HYPERPARATHYROIDISM SECONDARY
     Dosage: (DF ORAL)
     Route: 048
     Dates: start: 20100525, end: 20110316
  11. CALCIUM CARBONATE [Concomitant]
  12. FERROUS SULFATE TAB [Concomitant]
  13. ESOMEPRAZOLE MAGNESIUM [Concomitant]
  14. DYNACIRC [Concomitant]
  15. PREDNISONE [Concomitant]

REACTIONS (2)
  - WEIGHT DECREASED [None]
  - EATING DISORDER [None]
